FAERS Safety Report 14675884 (Version 2)
Quarter: 2018Q3

REPORT INFORMATION
  Report Type: Spontaneous
  Country: US (occurrence: US)
  Receive Date: 20180323
  Receipt Date: 20180816
  Transmission Date: 20181010
  Serious: Yes (Other)
  Sender: FDA-Public Use
  Company Number: US-DRREDDYS-USA/USA/18/0096976

PATIENT
  Age: 32 Year
  Sex: Male

DRUGS (4)
  1. PANTOPRAZOLE SODIUM DR TABLETS 20MG AND  40MG [Suspect]
     Active Substance: PANTOPRAZOLE SODIUM
     Indication: DYSPEPSIA
     Route: 065
  2. LANSOPRAZOLE DELAYED?RELEASE CAPSULES [Suspect]
     Active Substance: LANSOPRAZOLE
     Indication: GRANULOMATOUS DERMATITIS
     Route: 065
  3. AMOXICILLIN. [Concomitant]
     Active Substance: AMOXICILLIN
     Indication: GRANULOMATOUS DERMATITIS
     Route: 065
  4. CLARITHROMYCIN. [Concomitant]
     Active Substance: CLARITHROMYCIN
     Indication: GRANULOMATOUS DERMATITIS
     Route: 065

REACTIONS (6)
  - Granulomatous dermatitis [Not Recovered/Not Resolved]
  - Dermatosis [Recovered/Resolved]
  - Helicobacter infection [Recovered/Resolved]
  - Dermatitis acneiform [Not Recovered/Not Resolved]
  - Condition aggravated [Recovered/Resolved]
  - Adverse drug reaction [Unknown]
